FAERS Safety Report 5016817-9 (Version None)
Quarter: 2006Q2

REPORT INFORMATION
  Report Type: 
  Country: None (occurrence: None)
  Receive Date: 20060602
  Receipt Date: 20060309
  Transmission Date: 20061013
  Serious: No
  Sender: FDA-Public Use
  Company Number: US-GLAXOSMITHKLINE-A0596920A

PATIENT
  Age: 42 Year
  Sex: Female

DRUGS (3)
  1. AUGMENTIN '125' [Suspect]
     Indication: SINUSITIS
     Route: 048
     Dates: start: 20060226, end: 20060304
  2. WELLBUTRIN XL [Suspect]
     Indication: DEPRESSION
     Dosage: 300MG PER DAY
     Route: 048
     Dates: start: 20060201
  3. NO CONCURRENT MEDICATION [Concomitant]

REACTIONS (2)
  - PRURITUS [None]
  - URTICARIA [None]
